FAERS Safety Report 5469744-7 (Version None)
Quarter: 2007Q3

REPORT INFORMATION
  Report Type: 
  Country: None (occurrence: None)
  Receive Date: 20070927
  Receipt Date: 20070917
  Transmission Date: 20080115
  Serious: Yes (Other)
  Sender: FDA-Public Use
  Company Number: US-AMGEN-STX238771

PATIENT
  Sex: Male
  Weight: 108.1 kg

DRUGS (14)
  1. ENBREL [Suspect]
     Indication: PSORIATIC ARTHROPATHY
     Route: 058
     Dates: start: 20000517, end: 20070910
  2. ENBREL [Suspect]
     Indication: PSORIASIS
  3. SULFASALAZINE [Concomitant]
     Route: 065
  4. ATACAND [Concomitant]
     Route: 065
     Dates: start: 20060508, end: 20070907
  5. ATACAND [Concomitant]
     Dates: start: 20060508, end: 20070907
  6. LIPITOR [Concomitant]
     Route: 065
     Dates: start: 19990601, end: 20070907
  7. VITAMIN CAP [Concomitant]
     Route: 065
     Dates: start: 20060508
  8. TRAVATAN [Concomitant]
     Route: 047
     Dates: start: 20070601
  9. ZESTRIL [Concomitant]
     Dates: start: 19990601, end: 20060508
  10. PLENDIL [Concomitant]
     Dates: start: 19990601, end: 20060508
  11. BETAGAN [Concomitant]
     Route: 047
     Dates: start: 19990601, end: 20070907
  12. BETAMETHASONE DIPROPIONATE [Concomitant]
     Route: 061
     Dates: start: 19990601, end: 20010101
  13. TYLENOL (CAPLET) [Concomitant]
     Dates: start: 19990601, end: 20010810
  14. INDERAL [Concomitant]
     Dates: start: 20000517

REACTIONS (2)
  - MALIGNANT MELANOMA [None]
  - SQUAMOUS CELL CARCINOMA OF SKIN [None]
